FAERS Safety Report 13650845 (Version 2)
Quarter: 2017Q3

REPORT INFORMATION
  Report Type: Spontaneous
  Country: US (occurrence: US)
  Receive Date: 20170614
  Receipt Date: 20170710
  Transmission Date: 20171127
  Serious: Yes (Other)
  Sender: FDA-Public Use
  Company Number: US-SEPTODONT-201704070

PATIENT
  Age: 58 Year
  Sex: Male

DRUGS (1)
  1. SEPTOCAINE AND EPINEPHRINE [Suspect]
     Active Substance: ARTICAINE HYDROCHLORIDE\EPINEPHRINE BITARTRATE
     Indication: LOCAL ANAESTHESIA
     Dosage: INFERIOR MANDIBULAR NERVE BLOCK USING COVIDIEN - MONOJECT DENTAL NEEDLE 27G 1 3/8^
     Route: 004
     Dates: start: 20170516, end: 20170516

REACTIONS (6)
  - Dizziness postural [Recovered/Resolved]
  - Balance disorder [Recovered/Resolved]
  - Hypertension [Recovered/Resolved]
  - Myocardial infarction [Recovered/Resolved]
  - Incoherent [Recovered/Resolved]
  - Fall [Recovered/Resolved]

NARRATIVE: CASE EVENT DATE: 20170516
